FAERS Safety Report 23579664 (Version 1)
Quarter: 2024Q1

REPORT INFORMATION
  Report Type: Spontaneous
  Country: US (occurrence: US)
  Receive Date: 20240229
  Receipt Date: 20240229
  Transmission Date: 20240410
  Serious: No
  Sender: FDA-Public Use
  Company Number: US-BAYER-2024A019077

PATIENT
  Sex: Female

DRUGS (5)
  1. ALEVE [Suspect]
     Active Substance: NAPROXEN SODIUM
     Indication: Pain
  2. ALEVE [Suspect]
     Active Substance: NAPROXEN SODIUM
     Indication: Oral pain
  3. ALEVE [Suspect]
     Active Substance: NAPROXEN SODIUM
     Indication: Headache
  4. ADVIL [Suspect]
     Active Substance: IBUPROFEN
     Indication: Pain
  5. TYLENOL [Suspect]
     Active Substance: ACETAMINOPHEN
     Indication: Pain

REACTIONS (3)
  - Abdominal pain upper [None]
  - Extra dose administered [None]
  - Drug ineffective [None]
